FAERS Safety Report 10420142 (Version 1)
Quarter: 2014Q3

REPORT INFORMATION
  Report Type: Spontaneous
  Country: US (occurrence: None)
  Receive Date: 20140701
  Receipt Date: 20140701
  Transmission Date: 20150326
  Serious: No
  Sender: FDA-Public Use
  Company Number: 1000067725

PATIENT
  Age: 64 Year
  Sex: Female

DRUGS (4)
  1. PHENERGAN (PROMETHAZINE) (PROMETHAZINE) [Concomitant]
  2. METOPROLOL (METOPROLOL) (METOPROLOL) [Concomitant]
     Active Substance: METOPROLOL
  3. HYDROCODONE (HYDROCODONE) (HYDROCODONE) [Concomitant]
     Active Substance: HYDROCODONE
  4. LINZESS [Suspect]
     Active Substance: LINACLOTIDE
     Indication: IRRITABLE BOWEL SYNDROME
     Dosage: 145 MCG (145 MCG, 1 IN 1 D), ORAL
     Route: 048
     Dates: start: 20140528

REACTIONS (2)
  - Flatulence [None]
  - Abdominal distension [None]

NARRATIVE: CASE EVENT DATE: 20140528
